FAERS Safety Report 9345324 (Version 3)
Quarter: 2014Q2

REPORT INFORMATION
  Report Type: Spontaneous
  Country: US (occurrence: US)
  Receive Date: 20130613
  Receipt Date: 20140403
  Transmission Date: 20141212
  Serious: Yes (Hospitalization)
  Sender: FDA-Public Use
  Company Number: US-B.I. PHARMACEUTICALS,INC./RIDGEFIELD-2013-BI-16587BP

PATIENT
  Sex: Male
  Weight: 107.95 kg

DRUGS (14)
  1. PRADAXA [Suspect]
     Indication: CEREBROVASCULAR ACCIDENT PROPHYLAXIS
     Dosage: 300 MG
     Route: 065
     Dates: start: 20110729
  2. PRADAXA [Suspect]
     Indication: THROMBOSIS PROPHYLAXIS
  3. PRADAXA [Suspect]
     Indication: ATRIAL FIBRILLATION
  4. POTASSIUM [Concomitant]
     Dosage: 40 MEQ
     Route: 065
     Dates: start: 2004
  5. FUROSEMIDE [Concomitant]
     Dosage: 80 MG
     Route: 065
     Dates: start: 2004
  6. AMIODARONE [Concomitant]
     Dosage: 400 MG
     Route: 065
     Dates: start: 2004
  7. SIMVASTATIN [Concomitant]
     Dosage: 40 MG
     Route: 065
     Dates: start: 2004
  8. COREG [Concomitant]
     Dosage: 12.5 MG
     Route: 065
     Dates: start: 2004
  9. CALCIUM [Concomitant]
     Dosage: 500 MG
     Route: 065
  10. MAGNESIUM [Concomitant]
     Dosage: 400 MG
     Route: 065
  11. COQ10 [Concomitant]
     Route: 065
  12. ALKALINIC [Concomitant]
     Route: 065
  13. CENTRUM SILVER [Concomitant]
     Route: 065
  14. ALLOPURINOL [Concomitant]
     Dosage: 300 MG
     Route: 065
     Dates: start: 2004

REACTIONS (2)
  - Gastrointestinal haemorrhage [Unknown]
  - Haemorrhagic anaemia [Unknown]
